FAERS Safety Report 8135273-5 (Version None)
Quarter: 2012Q1

REPORT INFORMATION
  Report Type: 
  Country: None (occurrence: None)
  Receive Date: 20120214
  Receipt Date: 20120209
  Transmission Date: 20120608
  Serious: Yes (Other)
  Sender: FDA-Public Use
  Company Number: US-PFIZER INC-2011147823

PATIENT
  Sex: Female

DRUGS (3)
  1. PAXIL [Concomitant]
     Indication: DEPRESSION
     Dosage: UNK
     Dates: start: 20010101
  2. CHANTIX [Suspect]
     Indication: SMOKING CESSATION THERAPY
     Dosage: STARTER PACKS
     Dates: start: 20070723, end: 20080907
  3. CHANTIX [Suspect]
     Dosage: STARTER PACKS
     Dates: start: 20090601, end: 20090101

REACTIONS (5)
  - SUICIDE ATTEMPT [None]
  - THINKING ABNORMAL [None]
  - MENTAL IMPAIRMENT [None]
  - TINNITUS [None]
  - DEPRESSION [None]
